FAERS Safety Report 8461829-6 (Version None)
Quarter: 2012Q2

REPORT INFORMATION
  Report Type: 
  Country: None (occurrence: None)
  Receive Date: 20120625
  Receipt Date: 20120619
  Transmission Date: 20120825
  Serious: Yes (Life-Threatening, Hospitalization, Disabling, Other)
  Sender: FDA-Public Use
  Company Number: FR-ASTRAZENECA-2012SE35718

PATIENT
  Age: 18796 Day
  Sex: Male

DRUGS (5)
  1. STUDY PROCEDURE [Suspect]
     Indication: ACUTE MYOCARDIAL INFARCTION
  2. AZD6140 [Suspect]
     Dosage: SECOND DOSE OF LOADING DOSE
     Route: 048
     Dates: start: 20120528
  3. AZD6140 [Suspect]
     Indication: ACUTE MYOCARDIAL INFARCTION
     Dosage: FIRST DOSE OF LOADING DOSE
     Route: 048
     Dates: start: 20120528
  4. AZD6140 [Suspect]
     Route: 048
     Dates: start: 20120528
  5. ANTICOAGULATION [Suspect]

REACTIONS (2)
  - VENTRICULAR TACHYCARDIA [None]
  - PERICARDIAL EFFUSION [None]
